FAERS Safety Report 23204088 (Version 1)
Quarter: 2023Q4

REPORT INFORMATION
  Report Type: Spontaneous
  Country: US (occurrence: None)
  Receive Date: 20231120
  Receipt Date: 20231120
  Transmission Date: 20240109
  Serious: Yes (Hospitalization, Disabling)
  Sender: FDA-Public Use
  Company Number: None

PATIENT
  Age: 47 Year
  Sex: Male
  Weight: 96.75 kg

DRUGS (5)
  1. CIPROFLOXACIN [Suspect]
     Active Substance: CIPROFLOXACIN
     Indication: Diverticulitis
     Dates: start: 20161101, end: 20210105
  2. LEVAQUIN [Suspect]
     Active Substance: LEVOFLOXACIN
     Indication: Diverticulitis
     Dates: start: 20200704, end: 20210105
  3. OMEPRAZOLE [Concomitant]
     Active Substance: OMEPRAZOLE
  4. HYDROXYZINE HYDROCHLORIDE [Concomitant]
     Active Substance: HYDROXYZINE HYDROCHLORIDE
  5. Men^s Multivitamin [Concomitant]

REACTIONS (12)
  - Myocardial infarction [None]
  - Feeling abnormal [None]
  - Anxiety [None]
  - Neuropathy peripheral [None]
  - Hypersensitivity [None]
  - Nerve injury [None]
  - Ear disorder [None]
  - Balance disorder [None]
  - Diverticulitis [None]
  - Condition aggravated [None]
  - Cholecystectomy [None]
  - Impaired work ability [None]

NARRATIVE: CASE EVENT DATE: 20200704
